FAERS Safety Report 13646714 (Version 3)
Quarter: 2017Q4

REPORT INFORMATION
  Report Type: Spontaneous
  Country: JP (occurrence: JP)
  Receive Date: 20170613
  Receipt Date: 20171023
  Transmission Date: 20180320
  Serious: Yes (Other)
  Sender: FDA-Public Use
  Company Number: PHJP2017JP018964

PATIENT
  Age: 75 Year
  Sex: Female

DRUGS (1)
  1. ZOMETA [Suspect]
     Active Substance: ZOLEDRONIC ACID
     Indication: METASTASES TO BONE
     Dosage: 4 MG
     Route: 041
     Dates: start: 20100317, end: 20120111

REACTIONS (6)
  - Purulence [Unknown]
  - Fistula [Unknown]
  - Osteonecrosis of jaw [Not Recovered/Not Resolved]
  - Gingival swelling [Unknown]
  - Exposed bone in jaw [Unknown]
  - Gingival pain [Unknown]

NARRATIVE: CASE EVENT DATE: 20110524
